FAERS Safety Report 9697298 (Version 1)
Quarter: 2013Q4

REPORT INFORMATION
  Report Type: Spontaneous
  Country: US (occurrence: None)
  Receive Date: 20131119
  Receipt Date: 20131119
  Transmission Date: 20140711
  Serious: No
  Sender: FDA-Public Use
  Company Number: None

PATIENT
  Age: 17 Year
  Sex: Female
  Weight: 47.17 kg

DRUGS (1)
  1. ZONISAMIDE 100MG ?? GENERIC [Suspect]
     Indication: EPILEPSY
     Dosage: 2 CAPS = 200 MG   HS  PO
     Route: 048
     Dates: start: 2010, end: 2011

REACTIONS (3)
  - Convulsion [None]
  - Convulsion [None]
  - Product substitution issue [None]
